FAERS Safety Report 20751376 (Version 1)
Quarter: 2022Q2

REPORT INFORMATION
  Report Type: Spontaneous
  Country: FR (occurrence: FR)
  Receive Date: 20220426
  Receipt Date: 20220426
  Transmission Date: 20220721
  Serious: Yes (Hospitalization)
  Sender: FDA-Public Use
  Company Number: None

PATIENT
  Age: 69 Year
  Sex: Female
  Weight: 80 kg

DRUGS (6)
  1. ESOMEPRAZOLE [Suspect]
     Active Substance: ESOMEPRAZOLE
     Indication: Gastrooesophageal reflux disease
     Dosage: UNIT DOSE: 20 MG, FREQUENCY TIME :1 DAY, DURATION : 13 DAYS
     Route: 048
     Dates: start: 20210811, end: 20210824
  2. EXJADE [Suspect]
     Active Substance: DEFERASIROX
     Indication: Iron overload
     Dosage: UNIT DOSE: 360 MG, STRENGTH: 360 MG, FREQUENCY TIME : 3 DAY, DURATION : 431 DAYS
     Route: 048
     Dates: start: 20200619, end: 20210824
  3. ELTROMBOPAG OLAMINE [Suspect]
     Active Substance: ELTROMBOPAG OLAMINE
     Indication: Thrombocytopenia
     Dosage: UNIT DOSE: 50 MG, STRENGTH: 50 MG, FREQUENCY TIME : 2 DAYS, DURATION : 203 DAYS
     Route: 048
     Dates: start: 20210202, end: 20210824
  4. ANASTROZOLE [Concomitant]
     Active Substance: ANASTROZOLE
  5. POTASSIUM CHLORIDE [Concomitant]
     Active Substance: POTASSIUM CHLORIDE
  6. RETACRIT [Concomitant]
     Active Substance: EPOETIN ALFA-EPBX
     Dosage: RETACRIT 30000 IU/0.75 ML

REACTIONS (1)
  - Acute kidney injury [Unknown]

NARRATIVE: CASE EVENT DATE: 20210824
